FAERS Safety Report 4889667-1 (Version None)
Quarter: 2006Q1

REPORT INFORMATION
  Report Type: 
  Country: None (occurrence: None)
  Receive Date: 20060124
  Receipt Date: 20060113
  Transmission Date: 20060701
  Serious: Yes (Other)
  Sender: FDA-Public Use
  Company Number: PHBS2006BR01033

PATIENT
  Sex: Male

DRUGS (2)
  1. SANDOSTATIN LAR [Suspect]
     Indication: CARCINOID SYNDROME
     Dosage: 20 MG EVERY 4-5 WEEKS
  2. SANDOSTATIN LAR [Suspect]
     Dosage: 30 MG EVERY 4-5 WEEKS

REACTIONS (7)
  - DIARRHOEA [None]
  - FLUSHING [None]
  - INFECTION [None]
  - SERUM SEROTONIN INCREASED [None]
  - SMALL INTESTINE OPERATION [None]
  - SURGERY [None]
  - TUMOUR EXCISION [None]
